FAERS Safety Report 4284955-4 (Version None)
Quarter: 2004Q1

REPORT INFORMATION
  Report Type: 
  Country: None (occurrence: None)
  Receive Date: 20040202
  Receipt Date: 20040120
  Transmission Date: 20041129
  Serious: Yes (Hospitalization)
  Sender: FDA-Public Use
  Company Number: 2004-00222

PATIENT
  Age: 23 Year
  Sex: Female

DRUGS (3)
  1. MINOCYCLINE HCL [Suspect]
     Indication: ACNE
     Dosage: UNKNOWN X 24 MONTHS, ORAL
     Route: 048
     Dates: start: 19981001, end: 20001001
  2. FLUOXETINE [Concomitant]
  3. BROMAZEPAM (BROMAZEPAM) [Concomitant]

REACTIONS (1)
  - POLYARTERITIS NODOSA [None]
